FAERS Safety Report 6421894-4 (Version None)
Quarter: 2009Q4

REPORT INFORMATION
  Report Type: 
  Country: None (occurrence: None)
  Receive Date: 20091030
  Receipt Date: 20091021
  Transmission Date: 20100525
  Serious: Yes (Other)
  Sender: FDA-Public Use
  Company Number: CA-AMGEN-QUU371233

PATIENT
  Sex: Female
  Weight: 56.8 kg

DRUGS (4)
  1. NEUPOGEN [Suspect]
     Indication: NEUTROPENIA
     Route: 058
     Dates: start: 19910101
  2. VITAMIN TAB [Concomitant]
     Route: 048
     Dates: start: 20080501
  3. TUMS [Concomitant]
     Route: 048
  4. ACETAMINOPHEN [Concomitant]
     Route: 048

REACTIONS (2)
  - PREGNANCY INDUCED HYPERTENSION [None]
  - TOOTH DISORDER [None]
